FAERS Safety Report 15559225 (Version 1)
Quarter: 2018Q4

REPORT INFORMATION
  Report Type: Spontaneous
  Country: US (occurrence: US)
  Receive Date: 20181029
  Receipt Date: 20181029
  Transmission Date: 20190205
  Serious: No
  Sender: FDA-Public Use
  Company Number: US-BIOGEN-2018BI00651113

PATIENT
  Age: 63 Year
  Sex: Female

DRUGS (1)
  1. PLEGRIDY [Suspect]
     Active Substance: PEGINTERFERON BETA-1A
     Indication: MULTIPLE SCLEROSIS
     Route: 065
     Dates: start: 20180203

REACTIONS (4)
  - Fall [Recovered/Resolved]
  - Headache [Unknown]
  - Dizziness [Unknown]
  - Urine odour abnormal [Unknown]

NARRATIVE: CASE EVENT DATE: 20181022
